FAERS Safety Report 5704726-9 (Version None)
Quarter: 2008Q2

REPORT INFORMATION
  Report Type: 
  Country: None (occurrence: None)
  Receive Date: 20080410
  Receipt Date: 20080401
  Transmission Date: 20081010
  Serious: Yes (Hospitalization, Other)
  Sender: FDA-Public Use
  Company Number: 2005BI014331

PATIENT
  Age: 34 Year
  Sex: Female

DRUGS (8)
  1. AVONEX [Suspect]
     Indication: MULTIPLE SCLEROSIS
     Dosage: 30 UG;QW; IM
     Route: 030
     Dates: start: 19971101
  2. DITROPAN [Concomitant]
  3. XANAX [Concomitant]
  4. LEXAPRO [Concomitant]
  5. BACLOFEN [Concomitant]
  6. PREVACID [Concomitant]
  7. FLOVENT [Concomitant]
  8. LUNESTA [Concomitant]

REACTIONS (4)
  - CONVULSION [None]
  - MULTIPLE SCLEROSIS RELAPSE [None]
  - SPINAL DISORDER [None]
  - STRESS [None]
